FAERS Safety Report 21155915 (Version 2)
Quarter: 2023Q1

REPORT INFORMATION
  Report Type: Spontaneous
  Country: JP (occurrence: JP)
  Receive Date: 20220801
  Receipt Date: 20230118
  Transmission Date: 20230417
  Serious: Yes (Hospitalization)
  Sender: FDA-Public Use
  Company Number: JP-JNJFOC-20220759273

PATIENT
  Age: 48 Year
  Sex: Female
  Weight: 60 kg

DRUGS (28)
  1. UPTRAVI [Suspect]
     Active Substance: SELEXIPAG
     Indication: Systemic scleroderma
     Route: 048
     Dates: start: 20171010, end: 20171106
  2. UPTRAVI [Suspect]
     Active Substance: SELEXIPAG
     Route: 048
     Dates: start: 20171107, end: 20171123
  3. UPTRAVI [Suspect]
     Active Substance: SELEXIPAG
     Route: 048
     Dates: start: 20171124, end: 20171220
  4. UPTRAVI [Suspect]
     Active Substance: SELEXIPAG
     Route: 048
     Dates: start: 20171221, end: 20180131
  5. UPTRAVI [Suspect]
     Active Substance: SELEXIPAG
     Route: 048
     Dates: start: 20180201
  6. LANSOPRAZOLE [Concomitant]
     Active Substance: LANSOPRAZOLE
     Route: 065
     Dates: end: 20181020
  7. MOSAPRIDE CITRATE [Concomitant]
     Active Substance: MOSAPRIDE CITRATE
     Route: 065
     Dates: end: 20181020
  8. ASPIRIN [Concomitant]
     Active Substance: ASPIRIN
     Route: 065
     Dates: end: 20181020
  9. ADCIRCA [Concomitant]
     Active Substance: TADALAFIL
     Indication: Systemic scleroderma
  10. TRAMADOL [Concomitant]
     Active Substance: TRAMADOL
     Indication: Prophylaxis
     Dates: start: 20190830
  11. LIMAPROST [Concomitant]
     Active Substance: LIMAPROST
     Dates: end: 20171106
  12. BERAPROST SODIUM [Concomitant]
     Active Substance: BERAPROST SODIUM
     Indication: Systemic scleroderma
     Dates: end: 20171106
  13. PREDONINE [Concomitant]
     Active Substance: PREDNISOLONE
  14. CILOSTAZOL [Concomitant]
     Active Substance: CILOSTAZOL
     Dates: end: 20171106
  15. SARPOGRELATE HYDROCHLORIDE [Concomitant]
     Active Substance: SARPOGRELATE HYDROCHLORIDE
     Dates: end: 20171106
  16. ALLOID G [Concomitant]
     Active Substance: SODIUM ALGINATE
  17. CELLCEPT [Concomitant]
     Active Substance: MYCOPHENOLATE MOFETIL
     Dates: start: 20171107, end: 20180912
  18. BIFIDOBACTERIUM SPP. [Concomitant]
     Active Substance: BIFIDOBACTERIUM SPP.
     Dates: end: 20200130
  19. VONOPRAZAN FUMARATE [Concomitant]
     Active Substance: VONOPRAZAN FUMARATE
     Dates: start: 20190830
  20. SULFAMETHOXAZOLE\TRIMETHOPRIM [Concomitant]
     Active Substance: SULFAMETHOXAZOLE\TRIMETHOPRIM
     Indication: Prophylaxis
     Dates: start: 20190830
  21. OPSUMIT [Concomitant]
     Active Substance: MACITENTAN
     Indication: Systemic scleroderma
     Dates: start: 20190830
  22. TRIMEBUTINE MALEATE [Concomitant]
     Active Substance: TRIMEBUTINE MALEATE
     Dates: start: 20190830
  23. FERROUS SULFATE [Concomitant]
     Active Substance: FERROUS SULFATE
     Indication: Prophylaxis
     Dates: start: 20190830, end: 20191229
  24. ZINC ACETATE [Concomitant]
     Active Substance: ZINC ACETATE
     Indication: Taste disorder
     Dates: start: 20190830
  25. ACTEMRA [Concomitant]
     Active Substance: TOCILIZUMAB
     Dates: start: 20170911, end: 20181115
  26. ACTEMRA [Concomitant]
     Active Substance: TOCILIZUMAB
     Dates: start: 202001
  27. BENLYSTA [Concomitant]
     Active Substance: BELIMUMAB
     Dates: start: 20190221, end: 20191228
  28. TRACLEER [Concomitant]
     Active Substance: BOSENTAN
     Indication: Systemic scleroderma
     Dates: end: 20181020

REACTIONS (2)
  - Pancytopenia [Not Recovered/Not Resolved]
  - Taste disorder [Recovered/Resolved]

NARRATIVE: CASE EVENT DATE: 20180830
